FAERS Safety Report 6014739-8 (Version None)
Quarter: 2008Q4

REPORT INFORMATION
  Report Type: 
  Country: None (occurrence: None)
  Receive Date: 20081219
  Receipt Date: 20081204
  Transmission Date: 20090506
  Serious: Yes (Life-Threatening)
  Sender: FDA-Public Use
  Company Number: US-GENENTECH-271335

PATIENT
  Sex: Female

DRUGS (8)
  1. TRASTUZUMAB [Suspect]
     Indication: BREAST CANCER
     Dosage: 390 MG, Q3W
     Route: 042
     Dates: start: 20080916, end: 20081027
  2. AVASTIN [Suspect]
     Indication: BREAST CANCER
     Dosage: 975 MG, Q3W
     Route: 042
     Dates: start: 20080916, end: 20081027
  3. CARBOPLATIN [Suspect]
     Indication: BREAST CANCER
     Dosage: 608 MG, Q3W
     Route: 042
     Dates: start: 20080916, end: 20081027
  4. DOCETAXEL [Suspect]
     Indication: BREAST CANCER
     Dosage: 127 MG, Q3W
     Route: 042
     Dates: start: 20080916, end: 20081027
  5. NORVASC [Concomitant]
     Indication: DRUG USE FOR UNKNOWN INDICATION
     Dosage: UNK
  6. HYDROCHLOROTHIAZIDE [Concomitant]
     Indication: DRUG USE FOR UNKNOWN INDICATION
     Dosage: UNK
  7. INDERAL [Concomitant]
     Indication: DRUG USE FOR UNKNOWN INDICATION
     Dosage: UNK
  8. SIMVASTATIN [Concomitant]
     Indication: DRUG USE FOR UNKNOWN INDICATION

REACTIONS (1)
  - DIVERTICULAR PERFORATION [None]
